FAERS Safety Report 14155429 (Version 3)
Quarter: 2024Q1

REPORT INFORMATION
  Report Type: Report from Study
  Country: US (occurrence: US)
  Receive Date: 20171103
  Receipt Date: 20240306
  Transmission Date: 20240410
  Serious: No
  Sender: FDA-Public Use
  Company Number: US-PUMA BIOTECHNOLOGY, LTD.-2017US012619

PATIENT

DRUGS (8)
  1. NERLYNX [Suspect]
     Active Substance: NERATINIB
     Indication: Breast cancer
     Dosage: 6 TABLETS DAILY
     Route: 048
     Dates: start: 20170914, end: 20170919
  2. NERLYNX [Suspect]
     Active Substance: NERATINIB
     Dosage: 5 DF, DAILY
     Route: 048
     Dates: start: 20171010
  3. NERLYNX [Suspect]
     Active Substance: NERATINIB
     Dosage: 4 TABLET, UNK
     Route: 048
  4. TYLENOL [Concomitant]
     Active Substance: ACETAMINOPHEN
     Indication: Product used for unknown indication
  5. VALACYCLOVIR [Concomitant]
     Active Substance: VALACYCLOVIR HYDROCHLORIDE
     Indication: Product used for unknown indication
  6. BIOTIN [Concomitant]
     Active Substance: BIOTIN
     Indication: Product used for unknown indication
  7. OMEGA                              /00661201/ [Concomitant]
     Indication: Product used for unknown indication
  8. MAALOX                             /00082501/ [Concomitant]
     Indication: Product used for unknown indication

REACTIONS (9)
  - Nausea [Recovering/Resolving]
  - Vomiting [Recovering/Resolving]
  - Diarrhoea [Recovering/Resolving]
  - Reflux laryngitis [Recovering/Resolving]
  - Product dose omission issue [Unknown]
  - Oropharyngeal pain [Unknown]
  - Rhinorrhoea [Unknown]
  - Gastrooesophageal reflux disease [Recovering/Resolving]
  - Pyrexia [Recovering/Resolving]

NARRATIVE: CASE EVENT DATE: 20170916
